FAERS Safety Report 12183772 (Version 1)
Quarter: 2016Q1

REPORT INFORMATION
  Report Type: Spontaneous
  Country: NL (occurrence: NL)
  Receive Date: 20160316
  Receipt Date: 20160316
  Transmission Date: 20160526
  Serious: Yes (Death, Other)
  Sender: FDA-Public Use
  Company Number: NL-PFIZER INC-2016157131

PATIENT
  Age: 75 Year
  Sex: Male

DRUGS (1)
  1. REVATIO [Suspect]
     Active Substance: SILDENAFIL CITRATE
     Indication: PULMONARY HYPERTENSION
     Dosage: UNKNOWN DOSE, 3X/DAY
     Dates: start: 20110718

REACTIONS (1)
  - Death [Fatal]

NARRATIVE: CASE EVENT DATE: 20160304
